FAERS Safety Report 21298824 (Version 2)
Quarter: 2023Q2

REPORT INFORMATION
  Report Type: Spontaneous
  Country: CN (occurrence: CN)
  Receive Date: 20220906
  Receipt Date: 20230608
  Transmission Date: 20230721
  Serious: Yes (Hospitalization, Other)
  Sender: FDA-Public Use
  Company Number: CN-PFIZER INC-PV202200056810

PATIENT
  Age: 65 Year
  Sex: Female
  Weight: 58 kg

DRUGS (5)
  1. EPIRUBICIN [Suspect]
     Active Substance: EPIRUBICIN
     Indication: Diffuse large B-cell lymphoma
     Dosage: 35 MG, 1X/DAY
     Route: 041
     Dates: start: 20220719, end: 20220722
  2. ETOPOSIDE [Suspect]
     Active Substance: ETOPOSIDE
     Indication: Diffuse large B-cell lymphoma
     Dosage: 0.12 G, 1X/DAY
     Route: 042
     Dates: start: 20220719, end: 20220722
  3. RITUXIMAB [Suspect]
     Active Substance: RITUXIMAB
     Indication: Diffuse large B-cell lymphoma
     Dosage: 596.000 MG, 1X/DAY
     Route: 041
     Dates: start: 20220718, end: 20220718
  4. CYCLOPHOSPHAMIDE [Suspect]
     Active Substance: CYCLOPHOSPHAMIDE
     Indication: Diffuse large B-cell lymphoma
     Dosage: 0.95 G, 1X/DAY
     Route: 041
     Dates: start: 20220723, end: 20220723
  5. VINDESINE SULFATE [Suspect]
     Active Substance: VINDESINE SULFATE
     Indication: Diffuse large B-cell lymphoma
     Dosage: 1.4 MG, 1X/DAY
     Route: 042
     Dates: start: 20220719, end: 20220722

REACTIONS (1)
  - Leukopenia [Recovering/Resolving]

NARRATIVE: CASE EVENT DATE: 20220730
